FAERS Safety Report 4974105-0 (Version None)
Quarter: 2006Q1

REPORT INFORMATION
  Report Type: 
  Country: None (occurrence: None)
  Receive Date: 20060130
  Receipt Date: 20050927
  Transmission Date: 20060701
  Serious: No
  Sender: FDA-Public Use
  Company Number: COT_0315_2005

PATIENT
  Age: 41 Year
  Sex: Female
  Weight: 95.2554 kg

DRUGS (6)
  1. VENTAVIS [Suspect]
     Indication: PULMONARY HYPERTENSION
     Dosage: 2.5 MCG ONCE IH
     Route: 055
     Dates: start: 20050927, end: 20050927
  2. COUMADIN [Concomitant]
  3. PERCOCET [Concomitant]
  4. PREVACID [Concomitant]
  5. WELLBUTRIN [Concomitant]
  6. ASPIRIN [Concomitant]

REACTIONS (2)
  - HYPOAESTHESIA [None]
  - HYPOTENSION [None]
